FAERS Safety Report 21388236 (Version 1)
Quarter: 2022Q3

REPORT INFORMATION
  Report Type: Spontaneous
  Country: US (occurrence: US)
  Receive Date: 20220928
  Receipt Date: 20220928
  Transmission Date: 20221026
  Serious: Yes (Other)
  Sender: FDA-Public Use
  Company Number: US-Millicent Holdings Ltd.-MILL20220314

PATIENT
  Age: 55 Year
  Sex: Female

DRUGS (2)
  1. INTRAROSA [Suspect]
     Active Substance: PRASTERONE
     Indication: Menopause
     Dosage: UNKNOWN
     Route: 067
     Dates: end: 202205
  2. INTRAROSA [Suspect]
     Active Substance: PRASTERONE
     Indication: Dyspareunia

REACTIONS (4)
  - Gonorrhoea [Recovered/Resolved]
  - Smear cervix abnormal [Recovered/Resolved]
  - Vaginal discharge [Recovered/Resolved]
  - Cervix disorder [Recovered/Resolved]

NARRATIVE: CASE EVENT DATE: 20220101
